FAERS Safety Report 5036339-9 (Version None)
Quarter: 2006Q2

REPORT INFORMATION
  Report Type: 
  Country: None (occurrence: None)
  Receive Date: 20060601
  Receipt Date: 20051027
  Transmission Date: 20061013
  Serious: Yes (Other)
  Sender: FDA-Public Use
  Company Number: 425065

PATIENT
  Age: 22 Year
  Sex: Female
  Weight: 65.8 kg

DRUGS (1)
  1. LARIAM [Suspect]
     Indication: MALARIA PROPHYLAXIS
     Dosage: 250 MG 1 PER WEEK ORAL
     Route: 048
     Dates: start: 20040608, end: 20040803

REACTIONS (14)
  - ABNORMAL DREAMS [None]
  - ALCOHOL INTOLERANCE [None]
  - ANXIETY [None]
  - COORDINATION ABNORMAL [None]
  - DEPRESSION [None]
  - DISORIENTATION [None]
  - EMOTIONAL DISORDER [None]
  - ENURESIS [None]
  - JOINT INJURY [None]
  - MEMORY IMPAIRMENT [None]
  - NEUROLOGICAL EXAMINATION ABNORMAL [None]
  - PANIC ATTACK [None]
  - PARANOIA [None]
  - SUICIDAL IDEATION [None]
